FAERS Safety Report 20878226 (Version 1)
Quarter: 2022Q2

REPORT INFORMATION
  Report Type: Spontaneous
  Country: US (occurrence: US)
  Receive Date: 20220526
  Receipt Date: 20220526
  Transmission Date: 20220721
  Serious: Yes (Hospitalization, Other)
  Sender: FDA-Public Use
  Company Number: US-ALVOGEN-2022-ALVOGEN-120408

PATIENT
  Age: 81 Year
  Sex: Female

DRUGS (1)
  1. VORICONAZOLE [Suspect]
     Active Substance: VORICONAZOLE
     Indication: Brain abscess
     Route: 042

REACTIONS (6)
  - Disease recurrence [Recovering/Resolving]
  - Lung abscess [Recovering/Resolving]
  - Treatment failure [Recovering/Resolving]
  - Hydrocephalus [Recovering/Resolving]
  - Phaeohyphomycotic brain abscess [Recovering/Resolving]
  - Sinusitis [Recovering/Resolving]
